FAERS Safety Report 5778789-9 (Version None)
Quarter: 2008Q2

REPORT INFORMATION
  Report Type: 
  Country: None (occurrence: None)
  Receive Date: 20080619
  Receipt Date: 20080611
  Transmission Date: 20081010
  Serious: Yes (Other)
  Sender: FDA-Public Use
  Company Number: PHHY2008MX10862

PATIENT
  Age: 68 Year
  Sex: Male

DRUGS (1)
  1. DIOVAN [Suspect]
     Dosage: 1 TABLET (80 MG) PER DAY
     Dates: start: 20070101

REACTIONS (1)
  - RENAL DISORDER [None]
